FAERS Safety Report 8545248-X (Version None)
Quarter: 2012Q3

REPORT INFORMATION
  Report Type: 
  Country: None (occurrence: None)
  Receive Date: 20120727
  Receipt Date: 20120724
  Transmission Date: 20120928
  Serious: Yes (Hospitalization, Other)
  Sender: FDA-Public Use
  Company Number: PHHY2012BR037863

PATIENT
  Sex: Male

DRUGS (3)
  1. HYDREA [Concomitant]
     Indication: PLATELET COUNT DECREASED
     Dosage: 1 CAPSULE, DAILY
     Route: 048
     Dates: start: 20120401
  2. METFORMIN HYDROCHLORIDE [Concomitant]
     Dosage: UNK UKN, UNK
  3. DIOVAN HCT [Suspect]
     Indication: HYPERTENSION
     Dosage: 1 TABLET (80/12.5 MG), DAILY
     Route: 048

REACTIONS (5)
  - LEUKAEMIA [None]
  - PLATELET COUNT INCREASED [None]
  - HEADACHE [None]
  - DIABETES MELLITUS [None]
  - ARTHRALGIA [None]
